FAERS Safety Report 15621007 (Version 2)
Quarter: 2018Q4

REPORT INFORMATION
  Report Type: Spontaneous
  Country: US (occurrence: US)
  Receive Date: 20181115
  Receipt Date: 20181118
  Transmission Date: 20190205
  Serious: No
  Sender: FDA-Public Use
  Company Number: US-JNJFOC-20051004182

PATIENT
  Age: 33 Year
  Sex: Female
  Weight: 66.68 kg

DRUGS (4)
  1. DURAGESIC [Suspect]
     Active Substance: FENTANYL
     Indication: PAIN
     Route: 062
  2. NULEV [Concomitant]
     Active Substance: HYOSCYAMINE SULFATE
     Route: 048
     Dates: start: 2004
  3. LEXAPRO [Concomitant]
     Active Substance: ESCITALOPRAM OXALATE
     Route: 048
     Dates: start: 1999
  4. DURAGESIC [Suspect]
     Active Substance: FENTANYL
     Indication: PAIN
     Route: 062
     Dates: start: 200301

REACTIONS (6)
  - Application site discomfort [Not Recovered/Not Resolved]
  - Product complaint [Unknown]
  - Application site erythema [Not Recovered/Not Resolved]
  - Product availability issue [Unknown]
  - Product adhesion issue [Unknown]
  - Wrong technique in product usage process [Unknown]

NARRATIVE: CASE EVENT DATE: 200301
